FAERS Safety Report 9330699 (Version 1)
Quarter: 2013Q2

REPORT INFORMATION
  Report Type: Spontaneous
  Country: FR (occurrence: FR)
  Receive Date: 20130605
  Receipt Date: 20130605
  Transmission Date: 20140414
  Serious: Yes (Hospitalization)
  Sender: FDA-Public Use
  Company Number: FR-JNJFOC-20120811862

PATIENT
  Age: 58 Year
  Sex: Female
  Weight: 72 kg

DRUGS (8)
  1. STELARA [Suspect]
     Indication: PSORIASIS
     Route: 058
     Dates: start: 20120712, end: 20120712
  2. STELARA [Suspect]
     Indication: PSORIASIS
     Route: 058
     Dates: start: 201006, end: 201107
  3. METHOTREXATE [Concomitant]
     Dosage: USUAL TREATMENT
     Route: 065
  4. SPECIAFOLDINE [Concomitant]
     Dosage: USUAL TREATMENT
     Route: 065
  5. VOLTARENE [Concomitant]
     Dosage: USUAL TREATMENT
     Route: 065
  6. ATARAX [Concomitant]
     Dosage: USUAL TREATMENT
     Route: 065
  7. CORTANCYL [Concomitant]
     Dosage: USUAL TREATMENT
     Route: 065
  8. TENORETIC [Concomitant]
     Dosage: USUAL TREATMENT

REACTIONS (2)
  - Erythrodermic psoriasis [Not Recovered/Not Resolved]
  - Psoriasis [Not Recovered/Not Resolved]
